FAERS Safety Report 6174440-7 (Version None)
Quarter: 2009Q2

REPORT INFORMATION
  Report Type: 
  Country: None (occurrence: None)
  Receive Date: 20090430
  Receipt Date: 20080606
  Transmission Date: 20091009
  Serious: No
  Sender: FDA-Public Use
  Company Number: US-ASTRAZENECA-2008UW11411

PATIENT
  Age: 29 Year
  Sex: Male
  Weight: 93.9 kg

DRUGS (3)
  1. NEXIUM [Suspect]
     Indication: HELICOBACTER GASTRITIS
     Route: 048
     Dates: start: 20080604
  2. PYLERE [Concomitant]
  3. EVELIDE [Concomitant]

REACTIONS (2)
  - DYSPEPSIA [None]
  - RETCHING [None]
